FAERS Safety Report 4422035-5 (Version None)
Quarter: 2004Q3

REPORT INFORMATION
  Report Type: 
  Country: None (occurrence: None)
  Receive Date: 20040805
  Receipt Date: 20040722
  Transmission Date: 20050211
  Serious: Yes (Death, Hospitalization)
  Sender: FDA-Public Use
  Company Number: DSA_70352_2004

PATIENT
  Age: 84 Year
  Sex: Female
  Weight: 87.27 kg

DRUGS (19)
  1. MORPHINE SULFATE [Suspect]
     Indication: PAIN
     Dosage: 10 ML Q2HR PEG
     Dates: start: 20031016, end: 20031016
  2. DARVOCET-N 100 [Suspect]
     Indication: PAIN
     Dosage: 1 TAB Q4HR PEG
  3. LEVAQUIN [Concomitant]
  4. FLAGYL [Concomitant]
  5. ALLOPURINOL [Concomitant]
  6. SINEMET [Concomitant]
  7. NEURONTIN [Concomitant]
  8. LISINOPRIL [Concomitant]
  9. REGLAN       /USA/ [Concomitant]
  10. ZAROXOLYN [Concomitant]
  11. DEMODEX [Concomitant]
  12. LACTINEX [Concomitant]
  13. NPH INSULIN [Concomitant]
  14. COMBIVENT [Concomitant]
  15. PREVACID [Concomitant]
  16. PREDNISONE [Concomitant]
  17. ANUSOL-HC           /USA/ [Concomitant]
  18. GLUCERNA ^ABBOTT^ [Concomitant]
  19. XANAX [Concomitant]

REACTIONS (18)
  - ACCIDENTAL OVERDOSE [None]
  - ASTHENIA [None]
  - BLOOD PRESSURE DECREASED [None]
  - BLOOD PRESSURE IMMEASURABLE [None]
  - BLOOD PRESSURE INCREASED [None]
  - COMA [None]
  - CONFUSIONAL STATE [None]
  - ELECTROLYTE IMBALANCE [None]
  - HEART RATE DECREASED [None]
  - HYPONATRAEMIA [None]
  - MEDICATION ERROR [None]
  - NAUSEA [None]
  - OXYGEN SATURATION IMMEASURABLE [None]
  - PULSE ABSENT [None]
  - RHYTHM IDIOVENTRICULAR [None]
  - SEPSIS [None]
  - SOMNOLENCE [None]
  - VOMITING [None]
